FAERS Safety Report 5943998-2 (Version None)
Quarter: 2008Q4

REPORT INFORMATION
  Report Type: 
  Country: None (occurrence: None)
  Receive Date: 20081106
  Receipt Date: 20081029
  Transmission Date: 20090506
  Serious: Yes (Other)
  Sender: FDA-Public Use
  Company Number: US-TYCO HEALTHCARE/MALLINCKRODT-T200801826

PATIENT

DRUGS (2)
  1. OPTIRAY 300 [Suspect]
     Indication: COMPUTERISED TOMOGRAM THORAX
     Dosage: 120 ML, SINGLE
     Route: 042
     Dates: start: 20081029, end: 20081029
  2. CHEMOTHERAPY [Concomitant]
     Indication: NEOPLASM MALIGNANT

REACTIONS (2)
  - ANAPHYLACTIC REACTION [None]
  - PARAESTHESIA ORAL [None]
